FAERS Safety Report 5159564-5 (Version None)
Quarter: 2006Q4

REPORT INFORMATION
  Report Type: 
  Country: None (occurrence: None)
  Receive Date: 20061129
  Receipt Date: 20061124
  Transmission Date: 20070319
  Serious: Yes (Other)
  Sender: FDA-Public Use
  Company Number: 2006UW26017

PATIENT
  Age: 57 Year
  Sex: Female

DRUGS (2)
  1. FASLODEX [Suspect]
     Indication: BREAST CANCER STAGE IV
     Route: 030
  2. FASLODEX [Suspect]
     Indication: OESTROGEN RECEPTOR ASSAY POSITIVE
     Route: 030

REACTIONS (3)
  - ASTHENIA [None]
  - KETOSIS [None]
  - URINE ODOUR ABNORMAL [None]
